FAERS Safety Report 14047704 (Version 2)
Quarter: 2017Q4

REPORT INFORMATION
  Report Type: Spontaneous
  Country: IN (occurrence: IN)
  Receive Date: 20171005
  Receipt Date: 20171013
  Transmission Date: 20180321
  Serious: Yes (Life-Threatening, Hospitalization, Other)
  Sender: FDA-Public Use
  Company Number: IN-JNJFOC-20171002744

PATIENT
  Sex: Female

DRUGS (3)
  1. DICLOFENAC [Concomitant]
     Active Substance: DICLOFENAC
     Indication: MUSCULOSKELETAL PAIN
     Route: 050
  2. TRAMADOL HYDROCHLORIDE. [Suspect]
     Active Substance: TRAMADOL HYDROCHLORIDE
     Indication: MUSCULOSKELETAL PAIN
     Dosage: ONCE IN 2 TO 3 DAYS
     Route: 065
  3. TRAMADOL HYDROCHLORIDE. [Suspect]
     Active Substance: TRAMADOL HYDROCHLORIDE
     Indication: MUSCULOSKELETAL PAIN
     Route: 065

REACTIONS (7)
  - Drug dependence [Recovered/Resolved]
  - Respiratory rate decreased [Unknown]
  - Overdose [Unknown]
  - Unresponsive to stimuli [Recovered/Resolved]
  - Drug withdrawal syndrome [Unknown]
  - Injection site abscess [Unknown]
  - Cold sweat [Unknown]
